FAERS Safety Report 5222949-2 (Version None)
Quarter: 2007Q1

REPORT INFORMATION
  Report Type: 
  Country: None (occurrence: None)
  Receive Date: 20070129
  Receipt Date: 20070117
  Transmission Date: 20070707
  Serious: Yes (Other)
  Sender: FDA-Public Use
  Company Number: US-PFIZER INC-2007005012

PATIENT
  Sex: Female
  Weight: 55.3 kg

DRUGS (8)
  1. CHANTIX [Suspect]
     Indication: SMOKING CESSATION THERAPY
     Route: 048
     Dates: start: 20061001, end: 20061101
  2. ALEVE [Suspect]
     Indication: MUSCULOSKELETAL PAIN
  3. PROTONIX [Suspect]
     Indication: PEPTIC ULCER
  4. NEXIUM [Suspect]
     Indication: PEPTIC ULCER
  5. PREVACID [Suspect]
     Indication: PEPTIC ULCER
  6. FISH OIL [Concomitant]
  7. CALCIUM [Concomitant]
  8. VITAMINS [Concomitant]

REACTIONS (7)
  - ADVERSE EVENT [None]
  - FALL [None]
  - GASTROINTESTINAL HAEMORRHAGE [None]
  - JOINT INJURY [None]
  - MELAENA [None]
  - NAUSEA [None]
  - PEPTIC ULCER [None]
